FAERS Safety Report 20436153 (Version 3)
Quarter: 2022Q3

REPORT INFORMATION
  Report Type: Spontaneous
  Country: US (occurrence: None)
  Receive Date: 20220207
  Receipt Date: 20220901
  Transmission Date: 20221027
  Serious: Yes (Death, Other)
  Sender: FDA-Public Use
  Company Number: 2022A057104

PATIENT
  Age: 20713 Day
  Sex: Male
  Weight: 105.7 kg

DRUGS (51)
  1. NEXIUM [Suspect]
     Active Substance: ESOMEPRAZOLE MAGNESIUM
     Indication: Gastrooesophageal reflux disease
     Dosage: 2004 TO 2019
     Route: 048
  2. NEXIUM [Suspect]
     Active Substance: ESOMEPRAZOLE MAGNESIUM
     Indication: Gastrooesophageal reflux disease
     Dosage: 2004 TO 2019
     Route: 048
  3. NEXIUM [Suspect]
     Active Substance: ESOMEPRAZOLE MAGNESIUM
     Indication: Gastrooesophageal reflux disease
     Route: 048
     Dates: start: 2001, end: 2017
  4. NEXIUM [Suspect]
     Active Substance: ESOMEPRAZOLE MAGNESIUM
     Indication: Gastrooesophageal reflux disease
     Route: 048
     Dates: start: 2001, end: 2017
  5. NEXIUM [Suspect]
     Active Substance: ESOMEPRAZOLE MAGNESIUM
     Indication: Gastrooesophageal reflux disease
     Dosage: GENERIC
     Route: 065
     Dates: start: 2015, end: 2017
  6. NEXIUM [Suspect]
     Active Substance: ESOMEPRAZOLE MAGNESIUM
     Indication: Gastrooesophageal reflux disease
     Dosage: GENERIC
     Route: 065
     Dates: start: 2015, end: 2017
  7. PROTONIX [Suspect]
     Active Substance: PANTOPRAZOLE SODIUM
     Indication: Gastrooesophageal reflux disease
     Dosage: 2004 TO 2019
     Route: 065
  8. PROTONIX [Suspect]
     Active Substance: PANTOPRAZOLE SODIUM
     Indication: Gastrooesophageal reflux disease
     Dosage: 2004 TO 2019
     Route: 065
  9. PROTONIX [Suspect]
     Active Substance: PANTOPRAZOLE SODIUM
     Indication: Gastrooesophageal reflux disease
     Route: 065
     Dates: start: 2004, end: 2017
  10. PROTONIX [Suspect]
     Active Substance: PANTOPRAZOLE SODIUM
     Indication: Gastrooesophageal reflux disease
     Route: 065
     Dates: start: 2004, end: 2017
  11. PROTONIX [Suspect]
     Active Substance: PANTOPRAZOLE SODIUM
     Indication: Gastrooesophageal reflux disease
     Dosage: GENERIC
     Route: 065
     Dates: start: 2011, end: 2017
  12. PROTONIX [Suspect]
     Active Substance: PANTOPRAZOLE SODIUM
     Indication: Gastrooesophageal reflux disease
     Dosage: GENERIC
     Route: 065
     Dates: start: 2011, end: 2017
  13. FUROSEMIDE [Concomitant]
     Active Substance: FUROSEMIDE
     Indication: Hypertension
     Route: 065
     Dates: start: 2013, end: 2014
  14. LISINOPRIL [Concomitant]
     Active Substance: LISINOPRIL
     Indication: Hypertension
     Route: 065
     Dates: start: 2013
  15. ATORVASTATIN [Concomitant]
     Active Substance: ATORVASTATIN
     Indication: Hyperlipidaemia
     Route: 065
     Dates: start: 2013, end: 2015
  16. AMITRIPTYLINE [Concomitant]
     Active Substance: AMITRIPTYLINE
     Route: 065
     Dates: start: 2013, end: 2014
  17. ASPIRIN [Concomitant]
     Active Substance: ASPIRIN
     Indication: Cardiac disorder
     Route: 065
     Dates: start: 1999, end: 2017
  18. VITAMINS [Concomitant]
     Active Substance: VITAMINS
     Indication: Routine health maintenance
     Route: 065
     Dates: start: 1999, end: 2017
  19. METOPROLOL [Concomitant]
     Active Substance: METOPROLOL
  20. SIMVASTATIN [Concomitant]
     Active Substance: SIMVASTATIN
  21. NITROGLYCERIN [Concomitant]
     Active Substance: NITROGLYCERIN
  22. FLUTICASONE [Concomitant]
     Active Substance: FLUTICASONE
  23. IPRATROPIUM [Concomitant]
     Active Substance: IPRATROPIUM
  24. VICODIN [Concomitant]
     Active Substance: ACETAMINOPHEN\HYDROCODONE BITARTRATE
  25. ZANAFLEX [Concomitant]
     Active Substance: TIZANIDINE HYDROCHLORIDE
  26. PERCOCET [Concomitant]
     Active Substance: ACETAMINOPHEN\OXYCODONE HYDROCHLORIDE
  27. METOCLOPRAMIDE [Concomitant]
     Active Substance: METOCLOPRAMIDE
  28. VARENICLINE [Concomitant]
     Active Substance: VARENICLINE
  29. MIDAZOLAM [Concomitant]
     Active Substance: MIDAZOLAM
  30. VANCOMYCIN [Concomitant]
     Active Substance: VANCOMYCIN
  31. FENTANYL [Concomitant]
     Active Substance: FENTANYL
  32. PROPOFOL [Concomitant]
     Active Substance: PROPOFOL
  33. EPINEPHRINE [Concomitant]
     Active Substance: EPINEPHRINE
  34. HYDROCORTISONE [Concomitant]
     Active Substance: HYDROCORTISONE
  35. DOCUSATE [Concomitant]
     Active Substance: DOCUSATE
  36. TAMIFLU [Concomitant]
     Active Substance: OSELTAMIVIR PHOSPHATE
  37. ROCURONIUM [Concomitant]
     Active Substance: ROCURONIUM BROMIDE
  38. SUCCINYLCHOLINE [Concomitant]
     Active Substance: SUCCINYLCHOLINE
  39. AZACTAM [Concomitant]
     Active Substance: AZTREONAM
  40. KETAMINE [Concomitant]
     Active Substance: KETAMINE
  41. METHYLPREDNISOLONE [Concomitant]
     Active Substance: METHYLPREDNISOLONE
  42. MUCINEX [Concomitant]
     Active Substance: GUAIFENESIN
  43. CYCLOBENZAPRINE [Concomitant]
     Active Substance: CYCLOBENZAPRINE
  44. ROPINIROLE [Concomitant]
     Active Substance: ROPINIROLE
  45. DIPHENHYDRAMINE [Concomitant]
     Active Substance: DIPHENHYDRAMINE
  46. PRAMIPEXOLE [Concomitant]
     Active Substance: PRAMIPEXOLE
  47. LACTULOSE [Concomitant]
     Active Substance: LACTULOSE
  48. SERTRALINE [Concomitant]
     Active Substance: SERTRALINE HYDROCHLORIDE
  49. FERROUS SULFATE [Concomitant]
     Active Substance: FERROUS SULFATE
  50. PROMETHAZINE [Concomitant]
     Active Substance: PROMETHAZINE HYDROCHLORIDE
  51. KETOCONAZOLE [Concomitant]
     Active Substance: KETOCONAZOLE

REACTIONS (7)
  - Cardio-respiratory arrest [Fatal]
  - Respiratory failure [Fatal]
  - Hepatic cirrhosis [Fatal]
  - Shock [Fatal]
  - Chronic kidney disease [Unknown]
  - Acute kidney injury [Unknown]
  - Renal failure [Unknown]

NARRATIVE: CASE EVENT DATE: 20080630
